FAERS Safety Report 5755817-8 (Version None)
Quarter: 2008Q2

REPORT INFORMATION
  Report Type: 
  Country: None (occurrence: None)
  Receive Date: 20080528
  Receipt Date: 20080513
  Transmission Date: 20081010
  Serious: Yes (Other)
  Sender: FDA-Public Use
  Company Number: US022938

PATIENT
  Age: 46 Year
  Sex: Female

DRUGS (5)
  1. ACTIQ [Suspect]
     Indication: ARTHRALGIA
     Dosage: 400 MCQ TO 600 MCQ BUCCAL
     Route: 002
     Dates: start: 20030716, end: 20031201
  2. ACTIQ [Suspect]
     Indication: BACK PAIN
     Dosage: 400 MCQ TO 600 MCQ BUCCAL
     Route: 002
     Dates: start: 20030716, end: 20031201
  3. DEPAKOTE [Suspect]
     Indication: CONVULSION
     Dates: start: 20031117
  4. LORTAB [Concomitant]
  5. BACLOFEN [Concomitant]

REACTIONS (11)
  - BIPOLAR DISORDER [None]
  - CEREBRAL ATROPHY [None]
  - CEREBROVASCULAR ACCIDENT [None]
  - CONVULSION [None]
  - DEMENTIA [None]
  - DENTAL CARIES [None]
  - DEPENDENCE [None]
  - ENCEPHALOPATHY [None]
  - OVERDOSE [None]
  - SCHIZOPHRENIA [None]
  - TOOTH LOSS [None]
